FAERS Safety Report 9607871 (Version 1)
Quarter: 2013Q4

REPORT INFORMATION
  Report Type: Spontaneous
  Country: TR (occurrence: None)
  Receive Date: 20131007
  Receipt Date: 20131007
  Transmission Date: 20140711
  Serious: Yes (Hospitalization)
  Sender: FDA-Public Use
  Company Number: 2013RR-73334

PATIENT
  Age: 35 Year
  Sex: Female

DRUGS (2)
  1. METFORMIN (METFORMIN) [Suspect]
     Indication: PRODUCT USED FOR UNKNOWN INDICATION
  2. ROSIGLITAZONE [Suspect]
     Indication: PRODUCT USED FOR UNKNOWN INDICATION

REACTIONS (10)
  - Intentional overdose [None]
  - Suicide attempt [None]
  - Nausea [None]
  - Vomiting [None]
  - Oliguria [None]
  - Loss of consciousness [None]
  - Hypotension [None]
  - Metabolic acidosis [None]
  - Hypoglycaemia [None]
  - Hypothermia [None]
